FAERS Safety Report 21670070 (Version 1)
Quarter: 2022Q4

REPORT INFORMATION
  Report Type: Report from Study
  Country: US (occurrence: US)
  Receive Date: 20221201
  Receipt Date: 20221201
  Transmission Date: 20230113
  Serious: Yes (Hospitalization, Other)
  Sender: FDA-Public Use
  Company Number: US-GILEAD-2022-0607136

PATIENT
  Sex: Male

DRUGS (1)
  1. AMBRISENTAN [Suspect]
     Active Substance: AMBRISENTAN
     Indication: Idiopathic pulmonary fibrosis
     Dosage: 5 MG, QD
     Route: 065
     Dates: start: 20220415

REACTIONS (4)
  - Pneumonia [Unknown]
  - Coronavirus infection [Unknown]
  - Respiratory syncytial virus infection [Unknown]
  - Off label use [Unknown]
